FAERS Safety Report 22593072 (Version 2)
Quarter: 2023Q2

REPORT INFORMATION
  Report Type: Spontaneous
  Country: PL (occurrence: PL)
  Receive Date: 20230613
  Receipt Date: 20230619
  Transmission Date: 20230722
  Serious: Yes (Other)
  Sender: FDA-Public Use
  Company Number: PL-GILEAD-2023-0631557

PATIENT
  Sex: Female

DRUGS (1)
  1. TRODELVY [Suspect]
     Active Substance: SACITUZUMAB GOVITECAN-HZIY
     Indication: Product used for unknown indication
     Dosage: UNK, THIRD LINE
     Route: 065

REACTIONS (1)
  - Disease progression [Not Recovered/Not Resolved]
